FAERS Safety Report 8163457 (Version 2)
Quarter: 2012Q4

REPORT INFORMATION
  Report Type: 
  Country: US (occurrence: US)
  Receive Date: 20110930
  Receipt Date: 20120911
  Transmission Date: 20130627
  Serious: Yes (Other)
  Sender: FDA-Public Use
  Company Number: US-US-EMD SERONO, INC.-7079649

PATIENT
  Age: 49 Year
  Sex: Male
  Weight: 103 kg

DRUGS (5)
  1. REBIF [Suspect]
     Indication: MULTIPLE SCLEROSIS
     Route: 058
     Dates: start: 20110817
  2. REBIF [Suspect]
     Route: 058
     Dates: start: 201108
  3. HYDRALZINE [Concomitant]
     Indication: HYPERTENSION
  4. STEROIDS [Concomitant]
     Indication: OPTIC NEURITIS
     Route: 042
  5. TOPAMAX [Concomitant]
     Indication: MIGRAINE

REACTIONS (3)
  - Optic neuritis [Not Recovered/Not Resolved]
  - Multiple sclerosis [Not Recovered/Not Resolved]
  - Pain [Recovering/Resolving]
